FAERS Safety Report 4835373-9 (Version None)
Quarter: 2005Q4

REPORT INFORMATION
  Report Type: 
  Country: None (occurrence: None)
  Receive Date: 20051114
  Receipt Date: 20051102
  Transmission Date: 20060501
  Serious: Yes (Death, Other)
  Sender: FDA-Public Use
  Company Number: US_0511123550

PATIENT
  Age: 24 Year
  Sex: Male

DRUGS (2)
  1. ZYPREXA [Suspect]
     Indication: SCHIZOPHRENIA
     Dosage: 20 MG
     Dates: start: 20020901
  2. RISPERDAL [Concomitant]

REACTIONS (15)
  - BLOOD CHLORIDE INCREASED [None]
  - BLOOD POTASSIUM INCREASED [None]
  - BLOOD PRESSURE INCREASED [None]
  - BLOOD SODIUM INCREASED [None]
  - BLOOD UREA INCREASED [None]
  - DIABETES MELLITUS [None]
  - DIABETIC COMA [None]
  - DIABETIC KETOACIDOSIS [None]
  - FOOD POISONING [None]
  - GASTROENTERITIS [None]
  - HEART RATE INCREASED [None]
  - HYPERGLYCAEMIA [None]
  - NAUSEA [None]
  - VOMITING [None]
  - WEIGHT INCREASED [None]
